FAERS Safety Report 4644653-1 (Version None)
Quarter: 2005Q2

REPORT INFORMATION
  Report Type: 
  Country: None (occurrence: None)
  Receive Date: 20050422
  Receipt Date: 20050407
  Transmission Date: 20051028
  Serious: Yes (Other)
  Sender: FDA-Public Use
  Company Number: 2005-00750

PATIENT
  Sex: Male

DRUGS (2)
  1. VELCADE [Suspect]
     Indication: MULTIPLE MYELOMA
     Dates: start: 20050301, end: 20050301
  2. ANTIBIOTICS [Concomitant]

REACTIONS (2)
  - ANGIONEUROTIC OEDEMA [None]
  - LARYNGEAL DISORDER [None]
